FAERS Safety Report 8312000-X (Version None)
Quarter: 2012Q2

REPORT INFORMATION
  Report Type: 
  Country: None (occurrence: None)
  Receive Date: 20120425
  Receipt Date: 20120423
  Transmission Date: 20120825
  Serious: No
  Sender: FDA-Public Use
  Company Number: US-PFIZER INC-2012100362

PATIENT
  Sex: Male

DRUGS (8)
  1. LISINOPRIL [Suspect]
     Indication: HYPERTENSION
     Dosage: UNK
  2. METOPROLOL TARTRATE [Suspect]
     Indication: HYPERTENSION
     Dosage: UNK
  3. METOPROLOL TARTRATE [Suspect]
     Dosage: 100 MG, 4X/DAY
  4. CELEBREX [Concomitant]
     Dosage: UNK
  5. LISINOPRIL [Suspect]
     Dosage: 40 MG, 2X/DAY
  6. IBUPROFEN [Suspect]
     Dosage: 800 MG, UNK
  7. IBUPROFEN [Suspect]
     Indication: PAIN
     Dosage: UNK
  8. IBUPROFEN (ADVIL) [Suspect]
     Indication: PAIN
     Dosage: UNK

REACTIONS (1)
  - DRUG INEFFECTIVE [None]
